FAERS Safety Report 13109631 (Version 1)
Quarter: 2017Q1

REPORT INFORMATION
  Report Type: Spontaneous
  Country: US (occurrence: US)
  Receive Date: 20170112
  Receipt Date: 20170112
  Transmission Date: 20170428
  Serious: No
  Sender: FDA-Public Use
  Company Number: None

PATIENT
  Age: 68 Year
  Sex: Female

DRUGS (1)
  1. CAPECITABINE 500 MG ACCORD HEALTHCARE [Suspect]
     Active Substance: CAPECITABINE
     Indication: GALLBLADDER CANCER
     Dosage: 2000 MG TWICE A DAY FOR 14 DAYS ORALLY
     Route: 048
     Dates: start: 20161224

REACTIONS (1)
  - Gout [None]

NARRATIVE: CASE EVENT DATE: 20161225
